FAERS Safety Report 7916770-1 (Version None)
Quarter: 2011Q4

REPORT INFORMATION
  Report Type: 
  Country: None (occurrence: None)
  Receive Date: 20111114
  Receipt Date: 20110923
  Transmission Date: 20120403
  Serious: Yes (Death)
  Sender: FDA-Public Use
  Company Number: 2011US0327

PATIENT
  Sex: Male

DRUGS (2)
  1. KEPIVANCE [Suspect]
     Indication: PROPHYLAXIS
  2. KEPIVANCE [Suspect]
     Indication: STOMATITIS

REACTIONS (4)
  - INFECTION [None]
  - MULTI-ORGAN FAILURE [None]
  - TRANSPLANT FAILURE [None]
  - MUCOSAL INFLAMMATION [None]
